FAERS Safety Report 9676052 (Version 2)
Quarter: 2013Q4

REPORT INFORMATION
  Report Type: Report from Study
  Country: MX (occurrence: MX)
  Receive Date: 20131107
  Receipt Date: 20131107
  Transmission Date: 20140711
  Serious: Yes (Death)
  Sender: FDA-Public Use
  Company Number: PHHY2012MX021071

PATIENT
  Age: 43 Year
  Sex: Male

DRUGS (2)
  1. GLIVEC [Suspect]
     Indication: CHRONIC MYELOID LEUKAEMIA
     Dosage: 400 MG
     Dates: start: 20070912
  2. GLIVEC [Suspect]
     Dosage: 600 MG
     Dates: start: 20120307

REACTIONS (2)
  - Death [Fatal]
  - Leukocytosis [Unknown]
